FAERS Safety Report 8946770 (Version 3)
Quarter: 2013Q1

REPORT INFORMATION
  Report Type: Spontaneous
  Country: US (occurrence: US)
  Receive Date: 20121205
  Receipt Date: 20130102
  Transmission Date: 20140127
  Serious: Yes (Death, Other)
  Sender: FDA-Public Use
  Company Number: US-B.I. PHARMACEUTICALS,INC./RIDGEFIELD-2012-BI-01842BP

PATIENT
  Sex: Male
  Weight: 77 kg

DRUGS (4)
  1. PRADAXA [Suspect]
     Indication: ATRIAL FIBRILLATION
     Dosage: 300 MG
     Route: 048
     Dates: start: 201106
  2. BETA BLOCKERS [Concomitant]
  3. NIASPAN [Concomitant]
     Dosage: 500 MG
  4. SOTALOL [Concomitant]

REACTIONS (3)
  - Haemorrhage intracranial [Fatal]
  - Headache [Unknown]
  - Dysarthria [Unknown]
